FAERS Safety Report 6860174-X (Version None)
Quarter: 2010Q3

REPORT INFORMATION
  Report Type: 
  Country: None (occurrence: None)
  Receive Date: 20100720
  Receipt Date: 20100706
  Transmission Date: 20110219
  Serious: Yes (Hospitalization)
  Sender: FDA-Public Use
  Company Number: FR-ALLERGAN-1009098US

PATIENT
  Age: 87 Year
  Sex: Female

DRUGS (8)
  1. TROSPIUM CHLORIDE [Suspect]
     Indication: PRODUCT USED FOR UNKNOWN INDICATION
     Dosage: 20 MG, QD
     Route: 048
     Dates: start: 20100401, end: 20100510
  2. LASIX [Concomitant]
     Dosage: 20 MG, QAM
  3. TRIATEC [Concomitant]
     Dosage: 1.25 MG, QAM
  4. KARDEGIC [Concomitant]
     Dosage: 75 MG, QD
  5. CORDARONE [Concomitant]
     Dosage: 100 MG, QAM
     Dates: end: 20100507
  6. LEVOTHYROXINE SODIUM [Concomitant]
  7. CACIT D3 [Concomitant]
     Indication: OSTEOPOROSIS
  8. DOLIPRANE [Concomitant]
     Dosage: UNK

REACTIONS (2)
  - CARDIAC FAILURE [None]
  - TACHYCARDIA [None]
